FAERS Safety Report 9465938 (Version 1)
Quarter: 2013Q3

REPORT INFORMATION
  Report Type: Spontaneous
  Country: US (occurrence: US)
  Receive Date: 20130820
  Receipt Date: 20130820
  Transmission Date: 20140515
  Serious: No
  Sender: FDA-Public Use
  Company Number: US-B.I. PHARMACEUTICALS,INC./RIDGEFIELD-2013-BI-24612BP

PATIENT
  Sex: Female
  Weight: 104 kg

DRUGS (4)
  1. SPIRIVA [Suspect]
     Indication: ASTHMA
     Dosage: 18 MCG
     Route: 055
     Dates: start: 2008
  2. ADVAIR [Concomitant]
     Indication: ASTHMA
     Dosage: 4 PUF
     Route: 055
     Dates: start: 2007
  3. ALBUTEROL NEBULIZER [Concomitant]
     Indication: ASTHMA
     Dosage: 2.5 MG
     Route: 055
     Dates: start: 2007
  4. VENTOLIN [Concomitant]
     Indication: ASTHMA
     Route: 055
     Dates: start: 2007

REACTIONS (2)
  - Asthma [Recovered/Resolved]
  - Off label use [Not Recovered/Not Resolved]
